FAERS Safety Report 20783255 (Version 1)
Quarter: 2022Q2

REPORT INFORMATION
  Report Type: Report from Study
  Country: US (occurrence: US)
  Receive Date: 20220504
  Receipt Date: 20220504
  Transmission Date: 20220721
  Serious: Yes (Other)
  Sender: FDA-Public Use
  Company Number: US-TAKEDA-2022TUS015873

PATIENT
  Sex: Female

DRUGS (4)
  1. HUMAN IMMUNOGLOBULIN G [Suspect]
     Active Substance: HUMAN IMMUNOGLOBULIN G
     Indication: Immunodeficiency common variable
     Dosage: UNK
     Route: 042
  2. HUMAN IMMUNOGLOBULIN G [Suspect]
     Active Substance: HUMAN IMMUNOGLOBULIN G
     Indication: Primary immunodeficiency syndrome
  3. PANZYGA [Suspect]
     Active Substance: HUMAN IMMUNOGLOBULIN G
     Indication: Primary immunodeficiency syndrome
     Dosage: UNK
     Route: 065
  4. XOLAIR [Concomitant]
     Active Substance: OMALIZUMAB
     Dosage: UNK UNK, MONTHLY
     Route: 065

REACTIONS (12)
  - Anaphylactic reaction [Unknown]
  - Pharyngeal swelling [Unknown]
  - Gastrooesophageal reflux disease [Unknown]
  - Gastroenteritis viral [Recovering/Resolving]
  - Adverse drug reaction [Unknown]
  - Dyspnoea [Unknown]
  - Somnolence [Unknown]
  - Urticaria [Unknown]
  - Vomiting [Unknown]
  - Fatigue [Unknown]
  - Cough [Unknown]
  - Incorrect drug administration rate [Unknown]
